FAERS Safety Report 17489299 (Version 1)
Quarter: 2020Q1

REPORT INFORMATION
  Report Type: Report from Study
  Country: DE (occurrence: TH)
  Receive Date: 20200303
  Receipt Date: 20200303
  Transmission Date: 20200409
  Serious: Yes (Hospitalization)
  Sender: FDA-Public Use
  Company Number: TH-ELI_LILLY_AND_COMPANY-TH201810003271

PATIENT
  Age: 59 Year
  Sex: Male
  Weight: 51 kg

DRUGS (5)
  1. MORPHINE SULPHATE [Concomitant]
     Active Substance: MORPHINE SULFATE
     Indication: CONSTIPATION
     Dosage: UNK
     Route: 048
     Dates: start: 20180717
  2. AUGMENTIN BD [Concomitant]
     Active Substance: AMOXICILLIN\CLAVULANIC ACID
     Indication: TOOTH ABSCESS
     Dosage: UNK
     Dates: start: 20180903, end: 20180910
  3. CETUXIMAB. [Suspect]
     Active Substance: CETUXIMAB
     Indication: SQUAMOUS CELL CARCINOMA OF HEAD AND NECK
     Dosage: 250 MG/M2, WEEKLY (1/W)
     Route: 042
     Dates: start: 20180806, end: 20180910
  4. PALBOCICLIB [Concomitant]
     Active Substance: PALBOCICLIB
     Indication: SQUAMOUS CELL CARCINOMA OF HEAD AND NECK
     Dosage: 125 MG, DAILY
     Route: 048
     Dates: start: 20180820, end: 20180910
  5. METHADONE [Concomitant]
     Active Substance: METHADONE HYDROCHLORIDE
     Indication: CANCER PAIN
     Dosage: 5 MG, UNK
     Route: 048
     Dates: start: 20180717

REACTIONS (1)
  - Febrile neutropenia [Recovered/Resolved]

NARRATIVE: CASE EVENT DATE: 20180913
